FAERS Safety Report 4649819-2 (Version None)
Quarter: 2005Q2

REPORT INFORMATION
  Report Type: 
  Country: None (occurrence: None)
  Receive Date: 20050428
  Receipt Date: 20050419
  Transmission Date: 20051028
  Serious: Yes (Other)
  Sender: FDA-Public Use
  Company Number: 2005-03-1409

PATIENT

DRUGS (6)
  1. BETAMETHASONE SODIUM PHOSPHATE [Suspect]
     Indication: ASTHMA
     Dosage: SEE IMAGE
     Dates: start: 20050113, end: 20050113
  2. BETAMETHASONE SODIUM PHOSPHATE [Suspect]
     Indication: BRONCHITIS ACUTE
     Dosage: SEE IMAGE
     Dates: start: 20050113, end: 20050113
  3. BETAMETHASONE SODIUM PHOSPHATE [Suspect]
     Indication: ASTHMA
     Dosage: SEE IMAGE
     Dates: start: 20050118, end: 20050118
  4. BETAMETHASONE SODIUM PHOSPHATE [Suspect]
     Indication: BRONCHITIS ACUTE
     Dosage: SEE IMAGE
     Dates: start: 20050118, end: 20050118
  5. INTAL [Concomitant]
  6. MEPTIN [Concomitant]

REACTIONS (10)
  - ABDOMINAL PAIN UPPER [None]
  - CHILLS [None]
  - DIZZINESS [None]
  - HEADACHE [None]
  - HYPOAESTHESIA [None]
  - INSOMNIA [None]
  - LOSS OF CONSCIOUSNESS [None]
  - MUSCLE SPASMS [None]
  - PALPITATIONS [None]
  - VISION BLURRED [None]
